FAERS Safety Report 25371287 (Version 3)
Quarter: 2025Q2

REPORT INFORMATION
  Report Type: Spontaneous
  Country: US (occurrence: US)
  Receive Date: 20250529
  Receipt Date: 20250623
  Transmission Date: 20250716
  Serious: No
  Sender: ROCHE
  Company Number: US-ROCHE-10000292024

PATIENT
  Age: 67 Year
  Sex: Female
  Weight: 58.97 kg

DRUGS (9)
  1. ACTEMRA ACTPEN [Suspect]
     Active Substance: TOCILIZUMAB
     Indication: Rheumatoid arthritis
     Dosage: STRENGTH: 162MG/0.9ML
     Route: 058
     Dates: start: 2023
  2. ALBUTEROl SU [Concomitant]
  3. CALCIUM [Concomitant]
     Active Substance: CALCIUM
  4. LEVOTHYRoxiN TAB [Concomitant]
  5. MIRALAX POW [Concomitant]
  6. NAPROXEN TAB [Concomitant]
  7. PREDNlSoNE TAB [Concomitant]
  8. SERTRALINE h TAB [Concomitant]
  9. TYLENOL 8 HO-TBC 650MG [Concomitant]

REACTIONS (3)
  - Product quality issue [Unknown]
  - Joint swelling [Not Recovered/Not Resolved]
  - Product dose omission in error [Unknown]

NARRATIVE: CASE EVENT DATE: 20250603
